FAERS Safety Report 6629041-0 (Version None)
Quarter: 2010Q1

REPORT INFORMATION
  Report Type: 
  Country: None (occurrence: None)
  Receive Date: 20100311
  Receipt Date: 20090813
  Transmission Date: 20100710
  Serious: No
  Sender: FDA-Public Use
  Company Number: US-BIOGENIDEC-2009BI025390

PATIENT
  Sex: Male

DRUGS (2)
  1. AVONEX [Suspect]
     Indication: MULTIPLE SCLEROSIS
     Route: 030
     Dates: start: 20010101, end: 20040101
  2. AVONEX [Suspect]
     Route: 030
     Dates: start: 20040101

REACTIONS (9)
  - ANXIETY [None]
  - DEPRESSION [None]
  - DIPLOPIA [None]
  - FATIGUE [None]
  - FEAR OF NEEDLES [None]
  - MULTIPLE SCLEROSIS RELAPSE [None]
  - MUSCLE SPASTICITY [None]
  - RESTLESS LEGS SYNDROME [None]
  - VISION BLURRED [None]
